FAERS Safety Report 6444833-9 (Version None)
Quarter: 2009Q4

REPORT INFORMATION
  Report Type: 
  Country: None (occurrence: None)
  Receive Date: 20091118
  Receipt Date: 20091109
  Transmission Date: 20100525
  Serious: Yes (Hospitalization)
  Sender: FDA-Public Use
  Company Number: PHEH2009US06313

PATIENT
  Sex: Male

DRUGS (3)
  1. EXJADE [Suspect]
     Indication: MYELODYSPLASTIC SYNDROME
     Dosage: 1000 MG, BID
     Route: 048
     Dates: start: 20090529
  2. MIRALAX [Concomitant]
     Indication: DIARRHOEA
     Dosage: FIVE TIMES DAILY
  3. STOOL SOFTENER [Concomitant]

REACTIONS (5)
  - DIARRHOEA [None]
  - INFECTION [None]
  - LOSS OF CONSCIOUSNESS [None]
  - PYREXIA [None]
  - URINARY TRACT INFECTION [None]
